FAERS Safety Report 10599565 (Version 2)
Quarter: 2014Q4

REPORT INFORMATION
  Report Type: Spontaneous
  Country: US (occurrence: US)
  Receive Date: 20141121
  Receipt Date: 20141121
  Transmission Date: 20150529
  Serious: Yes (Hospitalization)
  Sender: FDA-Public Use
  Company Number: US-UCBSA-2014011319

PATIENT
  Age: 38 Year
  Sex: Female
  Weight: 70 kg

DRUGS (11)
  1. KEPPRA XR [Suspect]
     Active Substance: LEVETIRACETAM
     Dosage: 500 MG, 2X/DAY (BID)
     Dates: start: 201406
  2. CYMBALTA [Concomitant]
     Active Substance: DULOXETINE HYDROCHLORIDE
     Indication: MUSCLE SPASMS
  3. KLONOPIN [Concomitant]
     Active Substance: CLONAZEPAM
     Indication: CONVULSION PROPHYLAXIS
     Dosage: 1 MG, 3X/DAY (TID)
     Route: 048
  4. CYMBALTA [Concomitant]
     Active Substance: DULOXETINE HYDROCHLORIDE
     Indication: ANXIETY
     Dosage: 60 MG, ONCE DAILY (QD)
     Route: 048
     Dates: start: 2013
  5. CYMBALTA [Concomitant]
     Active Substance: DULOXETINE HYDROCHLORIDE
     Indication: DEPRESSION
  6. CYMBALTA [Concomitant]
     Active Substance: DULOXETINE HYDROCHLORIDE
     Indication: CONVULSION PROPHYLAXIS
  7. LYRICA [Suspect]
     Active Substance: PREGABALIN
     Indication: FIBROMYALGIA
     Dosage: 300 MG DAILY
     Route: 048
  8. KEPPRA XR [Suspect]
     Active Substance: LEVETIRACETAM
     Indication: CONVULSION PROPHYLAXIS
     Dosage: 1000 MG, 2X/DAY (BID)
     Route: 048
     Dates: end: 201406
  9. KLONOPIN [Concomitant]
     Active Substance: CLONAZEPAM
     Indication: ANXIETY
  10. TOPAMAX [Concomitant]
     Active Substance: TOPIRAMATE
     Indication: HEADACHE
     Dosage: 50 MG, 2X/DAY (BID)
     Route: 048
  11. LYRICA [Suspect]
     Active Substance: PREGABALIN
     Dosage: 600 MG DAILY
     Route: 048
     Dates: end: 201406

REACTIONS (7)
  - Drooling [Recovered/Resolved]
  - Overdose [Unknown]
  - Inappropriate schedule of drug administration [Unknown]
  - Feeling abnormal [Recovered/Resolved]
  - Fatigue [Recovered/Resolved]
  - Seizure [Recovered/Resolved]
  - Facial wasting [Recovered/Resolved]

NARRATIVE: CASE EVENT DATE: 201306
